FAERS Safety Report 16697754 (Version 1)
Quarter: 2019Q3

REPORT INFORMATION
  Report Type: Spontaneous
  Country: FR (occurrence: FR)
  Receive Date: 20190813
  Receipt Date: 20190813
  Transmission Date: 20191004
  Serious: Yes (Death)
  Sender: FDA-Public Use
  Company Number: FR-MYLANLABS-2019M1075169

PATIENT
  Age: 55 Year
  Sex: Male

DRUGS (1)
  1. LINEZOLID. [Suspect]
     Active Substance: LINEZOLID
     Indication: LUNG DISORDER
     Dosage: UNK
     Route: 048
     Dates: start: 20180704, end: 20180719

REACTIONS (1)
  - Hyperlactacidaemia [Fatal]

NARRATIVE: CASE EVENT DATE: 20180719
